FAERS Safety Report 5204352-4 (Version None)
Quarter: 2007Q1

REPORT INFORMATION
  Report Type: 
  Country: None (occurrence: None)
  Receive Date: 20070110
  Receipt Date: 20060227
  Transmission Date: 20070707
  Serious: No
  Sender: FDA-Public Use
  Company Number: US-BRISTOL-MYERS SQUIBB COMPANY-13296991

PATIENT
  Age: 63 Year
  Sex: Male
  Weight: 99 kg

DRUGS (14)
  1. ABILIFY [Suspect]
     Indication: BIPOLAR DISORDER
     Route: 048
     Dates: start: 20060226
  2. CARDIZEM [Concomitant]
  3. COUMADIN [Concomitant]
  4. PRINIVIL [Concomitant]
  5. NORVASC [Concomitant]
  6. DIOVAN [Concomitant]
  7. MICROZIDE [Concomitant]
  8. LASIX [Concomitant]
  9. TRICOR [Concomitant]
  10. ZETIA [Concomitant]
  11. KLONOPIN [Concomitant]
  12. NEURONTIN [Concomitant]
  13. BETAPACE [Concomitant]
  14. TRILAFON [Concomitant]

REACTIONS (4)
  - HEART RATE INCREASED [None]
  - HEART RATE IRREGULAR [None]
  - PAIN IN EXTREMITY [None]
  - SEDATION [None]
